FAERS Safety Report 4339097-6 (Version None)
Quarter: 2004Q1

REPORT INFORMATION
  Report Type: 
  Country: None (occurrence: None)
  Receive Date: 20040329
  Receipt Date: 20040223
  Transmission Date: 20041129
  Serious: No
  Sender: FDA-Public Use
  Company Number: USA040258352

PATIENT
  Age: 40 Year
  Sex: Female

DRUGS (2)
  1. STRATTERA [Suspect]
     Dosage: 40 MG/DAY
     Dates: start: 20040101
  2. WELLBUTRIN [Concomitant]

REACTIONS (3)
  - AGITATION [None]
  - PALPITATIONS [None]
  - TREMOR [None]
